FAERS Safety Report 5139996-1 (Version None)
Quarter: 2006Q4

REPORT INFORMATION
  Report Type: 
  Country: None (occurrence: None)
  Receive Date: 20061025
  Receipt Date: 20061013
  Transmission Date: 20070319
  Serious: Yes (Other)
  Sender: FDA-Public Use
  Company Number: 2006127202

PATIENT
  Age: 63 Year
  Sex: Male
  Weight: 127.0072 kg

DRUGS (1)
  1. CHANTIX [Suspect]
     Indication: SMOKING CESSATION THERAPY
     Dosage: 0.5 MG
     Dates: start: 20061003

REACTIONS (3)
  - BLOOD POTASSIUM INCREASED [None]
  - FATIGUE [None]
  - MUSCULAR WEAKNESS [None]
